FAERS Safety Report 8247867-7 (Version None)
Quarter: 2012Q1

REPORT INFORMATION
  Report Type: 
  Country: None (occurrence: None)
  Receive Date: 20120330
  Receipt Date: 20120322
  Transmission Date: 20120608
  Serious: Yes (Other)
  Sender: FDA-Public Use
  Company Number: US-JNJFOC-20120312413

PATIENT
  Sex: Male
  Weight: 90.72 kg

DRUGS (2)
  1. LEVAQUIN [Suspect]
     Indication: SINUS DISORDER
     Route: 048
  2. LEVAQUIN [Suspect]
     Indication: UPPER RESPIRATORY TRACT INFECTION
     Route: 048

REACTIONS (6)
  - TREATMENT FAILURE [None]
  - PLANTAR FASCIITIS [None]
  - TENDON RUPTURE [None]
  - EPICONDYLITIS [None]
  - PAIN IN EXTREMITY [None]
  - TENDON DISORDER [None]
